FAERS Safety Report 23430962 (Version 1)
Quarter: 2024Q1

REPORT INFORMATION
  Report Type: Spontaneous
  Country: US (occurrence: US)
  Receive Date: 20240123
  Receipt Date: 20240123
  Transmission Date: 20240409
  Serious: Yes (Other)
  Sender: FDA-Public Use
  Company Number: US-STRIDES ARCOLAB LIMITED-2024SP000683

PATIENT
  Age: 5 Year
  Sex: Male

DRUGS (13)
  1. DIAZEPAM [Suspect]
     Active Substance: DIAZEPAM
     Indication: Product used for unknown indication
     Dosage: UNK
     Route: 065
  2. LEVETIRACETAM [Suspect]
     Active Substance: LEVETIRACETAM
     Indication: Neonatal disorder
     Dosage: UNK
     Route: 065
  3. LEVETIRACETAM [Suspect]
     Active Substance: LEVETIRACETAM
     Indication: Epileptic encephalopathy
  4. LEVETIRACETAM [Suspect]
     Active Substance: LEVETIRACETAM
     Indication: Seizure
  5. PHENOBARBITAL [Suspect]
     Active Substance: PHENOBARBITAL
     Indication: Neonatal disorder
     Dosage: UNK
     Route: 065
  6. PHENOBARBITAL [Suspect]
     Active Substance: PHENOBARBITAL
     Indication: Epileptic encephalopathy
  7. PHENOBARBITAL [Suspect]
     Active Substance: PHENOBARBITAL
     Indication: Seizure
  8. CLONIDINE [Suspect]
     Active Substance: CLONIDINE
     Indication: Product used for unknown indication
     Dosage: UNK
     Route: 065
  9. VIGABATRIN [Concomitant]
     Active Substance: VIGABATRIN
     Indication: Neonatal disorder
     Dosage: UNK
     Route: 065
  10. VIGABATRIN [Concomitant]
     Active Substance: VIGABATRIN
     Indication: Epileptic encephalopathy
  11. CORTICOTROPIN [Concomitant]
     Active Substance: CORTICOTROPIN
     Indication: Infantile spasms
     Dosage: UNK
     Route: 065
  12. CORTICOTROPIN [Concomitant]
     Active Substance: CORTICOTROPIN
     Indication: Epileptic encephalopathy
  13. CANNABIDIOL [Concomitant]
     Active Substance: CANNABIDIOL
     Indication: Seizure
     Dosage: UNK
     Route: 065

REACTIONS (2)
  - Opisthotonus [Unknown]
  - Drug ineffective [Unknown]
